FAERS Safety Report 19039672 (Version 2)
Quarter: 2021Q2

REPORT INFORMATION
  Report Type: Spontaneous
  Country: JP (occurrence: JP)
  Receive Date: 20210322
  Receipt Date: 20210624
  Transmission Date: 20210717
  Serious: No
  Sender: FDA-Public Use
  Company Number: JP-JNJFOC-20210339080

PATIENT
  Age: 39 Year
  Sex: Female
  Weight: 68.1 kg

DRUGS (11)
  1. YONDELIS [Suspect]
     Active Substance: TRABECTEDIN
     Dosage: 2ND CYCLE
     Route: 041
     Dates: start: 20210217
  2. FENTOS [Concomitant]
     Active Substance: FENTANYL
     Route: 065
     Dates: start: 20200728, end: 20210608
  3. YONDELIS [Suspect]
     Active Substance: TRABECTEDIN
     Dosage: SIXTH CYCLE
     Route: 041
     Dates: start: 20210608
  4. NEOPHAGEN C [Suspect]
     Active Substance: AMMONIUM GLYCYRRHIZATE
     Route: 048
     Dates: start: 20210217
  5. NEOPHAGEN C [Suspect]
     Active Substance: AMMONIUM GLYCYRRHIZATE
     Indication: PRODUCT USED FOR UNKNOWN INDICATION
     Route: 048
     Dates: start: 20210120
  6. LASIX [Concomitant]
     Active Substance: FUROSEMIDE
     Route: 065
  7. LANSOPRAZOLE. [Concomitant]
     Active Substance: LANSOPRAZOLE
     Route: 065
     Dates: start: 20210129, end: 20210211
  8. YONDELIS [Suspect]
     Active Substance: TRABECTEDIN
     Indication: SYNOVIAL SARCOMA METASTATIC
     Dosage: 24 HOUR INFUSION
     Route: 041
     Dates: start: 20210120
  9. YONDELIS [Suspect]
     Active Substance: TRABECTEDIN
     Dosage: FIFTH CYCLE
     Route: 041
     Dates: start: 20210512
  10. YONDELIS [Suspect]
     Active Substance: TRABECTEDIN
     Dosage: THIRD CYCLE
     Route: 041
     Dates: start: 20210317
  11. YONDELIS [Suspect]
     Active Substance: TRABECTEDIN
     Dosage: FOURTH CYCLE
     Route: 041
     Dates: start: 20210414

REACTIONS (3)
  - Nausea [Unknown]
  - White blood cell count decreased [Unknown]
  - Hepatic function abnormal [Not Recovered/Not Resolved]

NARRATIVE: CASE EVENT DATE: 202101
